FAERS Safety Report 8862197 (Version 3)
Quarter: 2012Q4

REPORT INFORMATION
  Report Type: 
  Country: VE (occurrence: VE)
  Receive Date: 20121026
  Receipt Date: 20121221
  Transmission Date: 20130627
  Serious: Yes (Hospitalization)
  Sender: FDA-Public Use
  Company Number: VE-GENZYME-POMP-1002521

PATIENT
  Age: 15 Year
  Sex: Male
  Weight: 28 kg

DRUGS (5)
  1. MYOZYME [Suspect]
     Indication: GLYCOGEN STORAGE DISEASE TYPE II
     Dosage: 20 mg/kg, qow
     Route: 042
     Dates: start: 20050721
  2. PHENYTOIN [Concomitant]
     Indication: CONVULSION
     Dosage: 3.5 mg/kg, qd
     Dates: start: 201202
  3. VALPROIC ACID [Concomitant]
     Indication: CONVULSION
     Dosage: 26 mg/kg, qd
     Dates: start: 201103
  4. PHENOBARBITAL [Concomitant]
     Indication: CONVULSION
     Dosage: 3.5 mg/kg, qd
     Dates: start: 201010
  5. LEVETIRACETAM [Concomitant]
     Indication: CONVULSION
     Dosage: 35 mg/kg, qd
     Dates: start: 201205

REACTIONS (1)
  - Convulsion [Recovered/Resolved]
